FAERS Safety Report 13075137 (Version 1)
Quarter: 2016Q4

REPORT INFORMATION
  Report Type: Report from Study
  Country: DE (occurrence: DE)
  Receive Date: 20161230
  Receipt Date: 20161230
  Transmission Date: 20170207
  Serious: Yes (Hospitalization)
  Sender: FDA-Public Use
  Company Number: PHHO2016DE019017

PATIENT
  Age: 47 Year
  Sex: Male

DRUGS (1)
  1. AMN107 [Suspect]
     Active Substance: NILOTINIB
     Indication: CHRONIC MYELOID LEUKAEMIA
     Dosage: 300 MG, BID
     Route: 048
     Dates: start: 20150130, end: 20161216

REACTIONS (2)
  - Coronary artery disease [Recovering/Resolving]
  - Coronary artery stenosis [Recovering/Resolving]

NARRATIVE: CASE EVENT DATE: 20161220
